FAERS Safety Report 20980036 (Version 1)
Quarter: 2022Q2

REPORT INFORMATION
  Report Type: Spontaneous
  Country: SK (occurrence: SK)
  Receive Date: 20220620
  Receipt Date: 20220620
  Transmission Date: 20220721
  Serious: Yes (Other)
  Sender: FDA-Public Use
  Company Number: SK-BAYER-2022P004863

PATIENT
  Age: 73 Year
  Sex: Male

DRUGS (1)
  1. EYLEA [Suspect]
     Active Substance: AFLIBERCEPT
     Indication: Dry age-related macular degeneration
     Dosage: 1 DF, Q4WK, RIGHT EYE. 3 INJECTIONS (SOLUTION FOR INJECTION; 40MG/ML)
     Route: 031

REACTIONS (2)
  - Cardiac procedure complication [Unknown]
  - Endocarditis [Unknown]
